FAERS Safety Report 7903071-0 (Version None)
Quarter: 2011Q4

REPORT INFORMATION
  Report Type: 
  Country: None (occurrence: None)
  Receive Date: 20111107
  Receipt Date: 20111027
  Transmission Date: 20120403
  Serious: Yes (Hospitalization)
  Sender: FDA-Public Use
  Company Number: KR-JNJFOC-20110812171

PATIENT
  Age: 68 Year
  Sex: Female
  Weight: 67.6 kg

DRUGS (14)
  1. DIGESTIVE MEDICINE (DIGESTIVES, INCL ENZYMES) [Concomitant]
  2. PHENIRAMINE (PHENIRAMINE) [Concomitant]
  3. ULTRACET [Concomitant]
  4. DIAZEPAM [Concomitant]
  5. BIOFLOR (SACCHAROMYCES BOULARDII) [Concomitant]
  6. MACPERAN (METOCLOPRAMIDE HYDROCHLORIDE) [Concomitant]
  7. DACOGEN [Suspect]
     Indication: MYELODYSPLASTIC SYNDROME
     Dosage: SEE IMAGE
     Route: 042
     Dates: start: 20110502, end: 20110602
  8. DACOGEN [Suspect]
     Indication: MYELODYSPLASTIC SYNDROME
     Dosage: SEE IMAGE
     Route: 042
     Dates: start: 20110321, end: 20110325
  9. DACOGEN [Suspect]
     Indication: MYELODYSPLASTIC SYNDROME
     Dosage: SEE IMAGE
     Route: 042
     Dates: start: 20110117, end: 20110121
  10. DACOGEN [Suspect]
     Indication: MYELODYSPLASTIC SYNDROME
     Dosage: SEE IMAGE
     Route: 042
     Dates: start: 20110613, end: 20110617
  11. DACOGEN [Suspect]
     Indication: MYELODYSPLASTIC SYNDROME
     Dosage: SEE IMAGE
     Route: 042
     Dates: start: 20110801, end: 20110805
  12. DACOGEN [Suspect]
     Indication: MYELODYSPLASTIC SYNDROME
     Dosage: SEE IMAGE
     Route: 042
     Dates: start: 20110425, end: 20110427
  13. DACOGEN [Suspect]
     Indication: MYELODYSPLASTIC SYNDROME
     Dosage: SEE IMAGE
     Route: 042
     Dates: start: 20110221, end: 20110225
  14. LANSOPRAZOLE [Concomitant]

REACTIONS (5)
  - LIVER ABSCESS [None]
  - DIARRHOEA [None]
  - CHOLANGITIS ACUTE [None]
  - CHOLECYSTITIS [None]
  - PANCYTOPENIA [None]
